FAERS Safety Report 16783351 (Version 1)
Quarter: 2019Q3

REPORT INFORMATION
  Report Type: Spontaneous
  Country: US (occurrence: US)
  Receive Date: 20190907
  Receipt Date: 20190907
  Transmission Date: 20191005
  Serious: Yes (Life-Threatening, Hospitalization)
  Sender: FDA-Public Use
  Company Number: US-EMCURE PHARMACEUTICALS LTD-2019-EPL-0616

PATIENT
  Age: 64 Year
  Sex: Male

DRUGS (1)
  1. ACETAMINOPHEN. [Suspect]
     Active Substance: ACETAMINOPHEN
     Dosage: UNK

REACTIONS (6)
  - Respiratory failure [Unknown]
  - Intestinal perforation [Unknown]
  - Overdose [Unknown]
  - Methaemoglobinaemia [Recovered/Resolved]
  - Gastrointestinal haemorrhage [Unknown]
  - Shock [Unknown]
